FAERS Safety Report 7446554-2 (Version None)
Quarter: 2011Q2

REPORT INFORMATION
  Report Type: 
  Country: None (occurrence: None)
  Receive Date: 20110429
  Receipt Date: 20110419
  Transmission Date: 20111010
  Serious: Yes (Death, Other)
  Sender: FDA-Public Use
  Company Number: US-MERCK-1104USA02927

PATIENT
  Sex: Female

DRUGS (1)
  1. FOSAMAX [Suspect]
     Route: 048
     Dates: start: 20000101, end: 20090501

REACTIONS (5)
  - DEATH [None]
  - ANXIETY [None]
  - PAIN [None]
  - FEMUR FRACTURE [None]
  - NERVOUS SYSTEM DISORDER [None]
